FAERS Safety Report 19673368 (Version 1)
Quarter: 2021Q3

REPORT INFORMATION
  Report Type: Spontaneous
  Country: US (occurrence: US)
  Receive Date: 20210808
  Receipt Date: 20210808
  Transmission Date: 20211014
  Serious: Yes (Disabling)
  Sender: FDA-Public Use
  Company Number: None

PATIENT
  Age: 72 Year
  Sex: Female
  Weight: 84.6 kg

DRUGS (1)
  1. REGEN?COV [Suspect]
     Active Substance: CASIRIVIMAB\IMDEVIMAB
     Dates: start: 20210804, end: 20210804

REACTIONS (5)
  - Aphthous ulcer [None]
  - Speech disorder [None]
  - Hypophagia [None]
  - Pain [None]
  - Fluid intake reduced [None]

NARRATIVE: CASE EVENT DATE: 20210804
